FAERS Safety Report 5105630-X (Version None)
Quarter: 2006Q3

REPORT INFORMATION
  Report Type: 
  Country: None (occurrence: None)
  Receive Date: 20060915
  Receipt Date: 20060912
  Transmission Date: 20061208
  Serious: Yes (Life-Threatening, Other)
  Sender: FDA-Public Use
  Company Number: GB-GLAXOSMITHKLINE-B0438169A

PATIENT
  Sex: Male

DRUGS (8)
  1. ACETAMINOPHEN [Suspect]
  2. METOPROLOL [Suspect]
  3. PROPOXYPHENE NAPSYLATE [Suspect]
     Indication: HERNIA REPAIR
     Route: 048
  4. AMITRIPTYLINE HCL [Concomitant]
     Indication: SLEEP DISORDER
     Dosage: 25MG PER DAY
  5. ATORVASTATIN CALCIUM [Concomitant]
     Indication: HYPERLIPIDAEMIA
     Dosage: 20MG PER DAY
  6. DILTIAZEM HCL [Concomitant]
     Dosage: 240MG PER DAY
  7. FOSINOPRIL SODIUM [Concomitant]
     Indication: HYPERTENSION
     Dosage: 40MG PER DAY
  8. LEVOTHYROXINE SODIUM [Concomitant]
     Indication: HYPOTHYROIDISM
     Dosage: .075MG PER DAY

REACTIONS (6)
  - ATRIAL FIBRILLATION [None]
  - BRADYCARDIA [None]
  - DIZZINESS [None]
  - DRUG INTERACTION [None]
  - HYPERHIDROSIS [None]
  - HYPOTENSION [None]
